FAERS Safety Report 4831571-9 (Version None)
Quarter: 2005Q4

REPORT INFORMATION
  Report Type: 
  Country: None (occurrence: None)
  Receive Date: 20051118
  Receipt Date: 20051003
  Transmission Date: 20060501
  Serious: Yes (Hospitalization, Disabling)
  Sender: FDA-Public Use
  Company Number: US-MERCK-0510USA01988

PATIENT
  Age: 72 Year
  Sex: Male
  Weight: 105 kg

DRUGS (31)
  1. NASONEX [Concomitant]
     Route: 065
  2. PRILOSEC [Concomitant]
     Route: 065
  3. CODEINE PHOSPHATE AND PROMETHAZINE HYDROCHLORIDE [Concomitant]
     Route: 065
  4. DEXTROMETHORPHAN HYDROBROMIDE AND PROMETHAZINE HYDROCHLORIDE [Concomitant]
     Route: 065
  5. QUININE SULFATE [Concomitant]
     Route: 065
  6. SULFAMETHOXAZOLE AND TRIMETHOPRIM [Concomitant]
     Route: 065
  7. TERAZOSIN HYDROCHLORIDE [Concomitant]
     Route: 065
  8. TRIAMCINOLONE ACETONIDE [Concomitant]
     Route: 065
  9. MONOPRIL [Concomitant]
     Route: 065
  10. VIOXX [Suspect]
     Indication: ARTHRITIS
     Route: 048
     Dates: start: 20010312, end: 20040527
  11. VIOXX [Suspect]
     Indication: BACK PAIN
     Route: 048
     Dates: start: 20010312, end: 20040527
  12. ALBUTEROL [Concomitant]
     Route: 065
  13. AMBIEN [Concomitant]
     Route: 065
  14. AMIODARONE [Concomitant]
     Route: 065
  15. AMOXICILLIN [Concomitant]
     Route: 065
  16. [THERAPY UNSPECIFIED] [Concomitant]
     Route: 065
  17. ARICEPT [Concomitant]
     Route: 065
  18. ATROVENT [Concomitant]
     Route: 065
  19. AZMACORT [Concomitant]
     Route: 065
  20. CATAPRES [Concomitant]
     Route: 065
  21. CHLORHEXIDINE GLUCONATE [Concomitant]
     Route: 065
  22. CHLORTHALIDONE [Concomitant]
     Route: 065
  23. CIPRO [Concomitant]
     Route: 065
  24. CLINDAMYCIN HYDROCHLORIDE [Concomitant]
     Route: 065
  25. CLOTRIMAZOLE [Concomitant]
     Route: 065
  26. PROMETHAZINE [Concomitant]
     Route: 065
  27. DITROPAN [Concomitant]
     Route: 065
  28. ENALAPRIL MALEATE [Concomitant]
     Route: 065
  29. FUROSEMIDE [Concomitant]
     Route: 065
  30. KETOCONAZOLE [Concomitant]
     Route: 065
  31. LEXAPRO [Concomitant]
     Route: 065

REACTIONS (12)
  - ATRIAL FIBRILLATION [None]
  - ATRIOVENTRICULAR BLOCK FIRST DEGREE [None]
  - BACK DISORDER [None]
  - BRONCHITIS [None]
  - CARDIAC FAILURE CONGESTIVE [None]
  - CARDIOMEGALY [None]
  - CEREBROVASCULAR ACCIDENT [None]
  - DEPRESSED LEVEL OF CONSCIOUSNESS [None]
  - DRUG TOXICITY [None]
  - DYSPNOEA [None]
  - INSOMNIA [None]
  - RENAL FAILURE [None]
